FAERS Safety Report 7116718-6 (Version None)
Quarter: 2010Q4

REPORT INFORMATION
  Report Type: 
  Country: None (occurrence: None)
  Receive Date: 20101122
  Receipt Date: 20101108
  Transmission Date: 20110411
  Serious: Yes (Hospitalization, Other)
  Sender: FDA-Public Use
  Company Number: PHHY2010US75928

PATIENT
  Sex: Male

DRUGS (1)
  1. CLOZARIL [Suspect]
     Dosage: UNK

REACTIONS (16)
  - AGRANULOCYTOSIS [None]
  - ANXIETY [None]
  - ASPIRATION [None]
  - DIARRHOEA [None]
  - DRUG WITHDRAWAL SYNDROME [None]
  - DYSKINESIA [None]
  - DYSPHAGIA [None]
  - DYSTONIA [None]
  - GAIT DISTURBANCE [None]
  - MUSCLE RIGIDITY [None]
  - PNEUMONIA [None]
  - POSTURE ABNORMAL [None]
  - SPEECH DISORDER [None]
  - STARING [None]
  - TREMOR [None]
  - VOMITING [None]
